FAERS Safety Report 8256402-9 (Version None)
Quarter: 2012Q2

REPORT INFORMATION
  Report Type: 
  Country: None (occurrence: None)
  Receive Date: 20120402
  Receipt Date: 20120402
  Transmission Date: 20120825
  Serious: Yes (Hospitalization)
  Sender: FDA-Public Use
  Company Number: None

PATIENT
  Age: 55 Year
  Sex: Male
  Weight: 90 kg

DRUGS (1)
  1. LISINOPRIL AND HYDROCHLOROTHIAZIDE [Suspect]
     Indication: HYPERTENSION
     Dosage: 12.5/20 MG EVERY DAY PO
     Route: 048
     Dates: start: 20081231, end: 20120321

REACTIONS (4)
  - HYPOAESTHESIA [None]
  - OEDEMA [None]
  - SWELLING [None]
  - ANGIOEDEMA [None]
